FAERS Safety Report 13486831 (Version 1)
Quarter: 2017Q2

REPORT INFORMATION
  Report Type: Spontaneous
  Country: IL (occurrence: IL)
  Receive Date: 20170426
  Receipt Date: 20170426
  Transmission Date: 20170830
  Serious: Yes (Hospitalization, Other)
  Sender: FDA-Public Use
  Company Number: US-ASTRAZENECA-2017SE30895

PATIENT
  Sex: Male

DRUGS (2)
  1. SYNAGIS [Suspect]
     Active Substance: PALIVIZUMAB
     Indication: PREMATURE BABY
     Dosage: 36 MG, DOSING UNKNOWN
     Route: 030
     Dates: start: 20170308
  2. SYNAGIS [Suspect]
     Active Substance: PALIVIZUMAB
     Indication: RESPIRATORY SYNCYTIAL VIRUS INFECTION
     Dosage: 36 MG, DOSING UNKNOWN
     Route: 030
     Dates: start: 20170308

REACTIONS (2)
  - Oxygen saturation decreased [Unknown]
  - Respiratory syncytial virus infection [Unknown]
